FAERS Safety Report 19239218 (Version 2)
Quarter: 2021Q2

REPORT INFORMATION
  Report Type: Spontaneous
  Country: SE (occurrence: SE)
  Receive Date: 20210510
  Receipt Date: 20210524
  Transmission Date: 20210717
  Serious: Yes (Death, Life-Threatening, Other)
  Sender: FDA-Public Use
  Company Number: SE-ASTRAZENECA-2021A406175

PATIENT
  Sex: Male
  Weight: 72 kg

DRUGS (6)
  1. MOVICOL [Concomitant]
     Active Substance: POLYETHYLENE GLYCOL 3350\POTASSIUM CHLORIDE\SODIUM BICARBONATE\SODIUM CHLORIDE
  2. ATACAND [Concomitant]
     Active Substance: CANDESARTAN CILEXETIL
  3. OXASCAND [Concomitant]
     Active Substance: OXAZEPAM
  4. SENSAVAL [Concomitant]
  5. SEROQUEL [Suspect]
     Active Substance: QUETIAPINE FUMARATE
     Route: 048
     Dates: start: 2009, end: 2014
  6. NORSPAN [Concomitant]
     Active Substance: BUPRENORPHINE

REACTIONS (5)
  - Cardiac arrest [Fatal]
  - Cardiomegaly [Fatal]
  - Heart rate irregular [Fatal]
  - Overdose [Fatal]
  - Plasma cell myeloma [Unknown]
